FAERS Safety Report 6022847-0 (Version None)
Quarter: 2008Q4

REPORT INFORMATION
  Report Type: 
  Country: None (occurrence: None)
  Receive Date: 20081230
  Receipt Date: 20080715
  Transmission Date: 20090506
  Serious: No
  Sender: FDA-Public Use
  Company Number: US-ABBOTT-08P-163-0464013-00

PATIENT
  Weight: 56.75 kg

DRUGS (11)
  1. OMNICEF [Suspect]
     Indication: WOUND
     Route: 048
     Dates: start: 20080714, end: 20080714
  2. LEVOTHYROXINE SODIUM [Concomitant]
     Indication: HYPOTHYROIDISM
     Route: 048
  3. BACLOFEN [Concomitant]
     Indication: MUSCLE RELAXANT THERAPY
     Route: 048
  4. VENLAFAXINE HYDROCHLORIDE [Concomitant]
     Indication: DEPRESSION
     Route: 048
  5. CLARINAC [Concomitant]
     Indication: ALLERGIC SINUSITIS
     Route: 048
  6. CLONAZEPAM [Concomitant]
     Indication: ANXIETY
     Dosage: 1 MG TAB, 1/2 TAB DAILY
     Route: 048
  7. MONTELUKAST SODIUM [Concomitant]
     Indication: ALLERGIC SINUSITIS
     Route: 048
  8. MACROGOL [Concomitant]
     Indication: CONSTIPATION
     Dosage: 1 PACKAGE QD
     Route: 048
  9. MORPHINE SULFATE [Concomitant]
     Indication: PAIN
     Route: 048
     Dates: start: 20050101
  10. NICOTINAMIDE [Concomitant]
     Indication: VITAMIN SUPPLEMENTATION
  11. FIORINAL [Concomitant]
     Indication: MIGRAINE

REACTIONS (6)
  - ABDOMINAL PAIN [None]
  - CHEST PAIN [None]
  - FLANK PAIN [None]
  - MIGRAINE [None]
  - PALPITATIONS [None]
  - POLLAKIURIA [None]
